FAERS Safety Report 7341794-5 (Version None)
Quarter: 2011Q1

REPORT INFORMATION
  Report Type: 
  Country: None (occurrence: None)
  Receive Date: 20110309
  Receipt Date: 20110302
  Transmission Date: 20110831
  Serious: Yes (Other)
  Sender: FDA-Public Use
  Company Number: US-US-EMD SERONO, INC.-7011770

PATIENT
  Sex: Female

DRUGS (7)
  1. STEROIDS [Concomitant]
     Indication: DYSPNOEA
     Route: 048
     Dates: start: 20100701, end: 20100101
  2. REBIF [Suspect]
  3. REBIF [Suspect]
     Route: 058
     Dates: start: 20100629
  4. STEROIDS [Concomitant]
     Indication: DIZZINESS
  5. STEROIDS [Concomitant]
     Indication: MULTIPLE SCLEROSIS RELAPSE
     Dates: start: 20100601, end: 20100101
  6. REBIF [Suspect]
     Indication: MULTIPLE SCLEROSIS
     Dates: start: 20050101, end: 20081201
  7. STEROIDS [Concomitant]
     Indication: HYPOVENTILATION

REACTIONS (3)
  - INFLUENZA LIKE ILLNESS [None]
  - OPTIC NEURITIS [None]
  - CONTUSION [None]
